FAERS Safety Report 9441172 (Version 1)
Quarter: 2013Q3

REPORT INFORMATION
  Report Type: Spontaneous
  Country: GB (occurrence: None)
  Receive Date: 20130801
  Receipt Date: 20130801
  Transmission Date: 20140515
  Serious: Yes (Other)
  Sender: FDA-Public Use
  Company Number: 2013GMK006298

PATIENT
  Age: 26 Year
  Sex: Female

DRUGS (2)
  1. GABAPENTIN (GABAPENTIN) [Suspect]
     Indication: NEURALGIA
     Route: 048
     Dates: start: 200905
  2. REBIF (INTERFERON BETA-1A) [Suspect]
     Indication: MULTIPLE SCLEROSIS
     Dosage: 22 UG, THREE TIMES IN A WEEK, SC
     Route: 058
     Dates: start: 201205, end: 201303

REACTIONS (4)
  - Foetal cardiac disorder [None]
  - Abortion induced [None]
  - Unwanted pregnancy [None]
  - Exposure during pregnancy [None]
